FAERS Safety Report 4488947-1 (Version None)
Quarter: 2004Q4

REPORT INFORMATION
  Report Type: 
  Country: None (occurrence: None)
  Receive Date: 20041029
  Receipt Date: 20041019
  Transmission Date: 20050328
  Serious: Yes (Hospitalization)
  Sender: FDA-Public Use
  Company Number: JP-BRISTOL-MYERS SQUIBB COMPANY-12743837

PATIENT
  Age: 70 Year
  Sex: Male

DRUGS (1)
  1. MITOMYCIN-C BULK POWDER [Suspect]
     Indication: INTRAOCULAR PRESSURE TEST
     Dates: start: 20021225, end: 20021225

REACTIONS (1)
  - CHOROIDAL DETACHMENT [None]
